FAERS Safety Report 8399588-8 (Version None)
Quarter: 2012Q2

REPORT INFORMATION
  Report Type: 
  Country: None (occurrence: None)
  Receive Date: 20120531
  Receipt Date: 20120518
  Transmission Date: 20120825
  Serious: No
  Sender: FDA-Public Use
  Company Number: US-ASTRAZENECA-2012SE33032

PATIENT
  Age: 64 Year
  Sex: Male

DRUGS (3)
  1. TOCOPHEROL CONCENTRATE CAP [Concomitant]
     Dosage: UNKNOWN
  2. PRILOSEC OTC [Suspect]
     Dosage: UNKNOWN
     Route: 048
  3. PRILOSEC [Interacting]
     Dosage: UNKNOWN
     Route: 048

REACTIONS (2)
  - VITAMIN E INCREASED [None]
  - DRUG INTERACTION [None]
